FAERS Safety Report 14031169 (Version 2)
Quarter: 2017Q4

REPORT INFORMATION
  Report Type: Spontaneous
  Country: CH (occurrence: CH)
  Receive Date: 20171002
  Receipt Date: 20171013
  Transmission Date: 20180321
  Serious: Yes (Other)
  Sender: FDA-Public Use
  Company Number: CH-JNJFOC-20170929923

PATIENT
  Sex: Female

DRUGS (5)
  1. SINTROM [Concomitant]
     Active Substance: ACENOCOUMAROL
     Route: 065
     Dates: start: 20160703, end: 20160828
  2. XARELTO [Suspect]
     Active Substance: RIVAROXABAN
     Indication: CARDIAC FIBRILLATION
     Route: 048
     Dates: start: 2015, end: 201607
  3. XARELTO [Suspect]
     Active Substance: RIVAROXABAN
     Indication: ATRIAL FLUTTER
     Route: 048
     Dates: start: 201608
  4. XARELTO [Suspect]
     Active Substance: RIVAROXABAN
     Indication: CARDIAC FIBRILLATION
     Route: 048
     Dates: start: 201608
  5. XARELTO [Suspect]
     Active Substance: RIVAROXABAN
     Indication: ATRIAL FLUTTER
     Route: 048
     Dates: start: 2015, end: 201607

REACTIONS (3)
  - Fall [Unknown]
  - Wrist fracture [Unknown]
  - Muscular weakness [Unknown]

NARRATIVE: CASE EVENT DATE: 201512
